FAERS Safety Report 8834399 (Version 2)
Quarter: 2012Q4

REPORT INFORMATION
  Report Type: 
  Country: US (occurrence: US)
  Receive Date: 20121010
  Receipt Date: 20121015
  Transmission Date: 20130627
  Serious: No
  Sender: FDA-Public Use
  Company Number: US-TEVA-361721USA

PATIENT
  Age: 66 Year
  Sex: Male
  Weight: 90.8 kg

DRUGS (2)
  1. PROAIR HFA [Suspect]
     Indication: CHRONIC OBSTRUCTIVE PULMONARY DISEASE
     Dosage: 720 Microgram Daily; 2 puffs QID
     Dates: start: 201208
  2. AMLODIPINE W/BENAZEPRIL [Concomitant]
     Indication: HYPERTENSION
     Dosage: 5-10 mg QD
     Route: 048

REACTIONS (1)
  - Drug ineffective [Recovered/Resolved]
